FAERS Safety Report 8200799-2 (Version None)
Quarter: 2012Q1

REPORT INFORMATION
  Report Type: 
  Country: None (occurrence: None)
  Receive Date: 20120312
  Receipt Date: 20120309
  Transmission Date: 20120608
  Serious: No
  Sender: FDA-Public Use
  Company Number: US-PFIZER INC-2012063535

PATIENT
  Sex: Male
  Weight: 100 kg

DRUGS (5)
  1. AMBIEN [Concomitant]
     Indication: SLEEP DISORDER
     Dosage: 10 MG, DAILY
  2. DIAZEPAM [Concomitant]
     Indication: ANXIETY
     Dosage: 2 MG, AS NEEDED
  3. GABAPENTIN [Concomitant]
     Indication: NERVOUS SYSTEM DISORDER
     Dosage: 300 MG, 3X/DAY
  4. SIMVASTATIN [Concomitant]
     Indication: BLOOD CHOLESTEROL INCREASED
     Dosage: 40 MG, DAILY
  5. CELEBREX [Suspect]
     Indication: ARTHROPATHY
     Dosage: 10 MG, 2X/DAY
     Route: 048
     Dates: end: 20120305

REACTIONS (2)
  - PAIN [None]
  - MOVEMENT DISORDER [None]
